FAERS Safety Report 5313231-3 (Version None)
Quarter: 2007Q2

REPORT INFORMATION
  Report Type: 
  Country: None (occurrence: None)
  Receive Date: 20070501
  Receipt Date: 20070420
  Transmission Date: 20071010
  Serious: Yes (Hospitalization)
  Sender: FDA-Public Use
  Company Number: PHBS2007JP06592

PATIENT
  Age: 3 Year
  Sex: Male

DRUGS (2)
  1. ZADITEN [Suspect]
     Route: 048
  2. ALESION [Suspect]

REACTIONS (1)
  - FEBRILE CONVULSION [None]
